FAERS Safety Report 9637066 (Version 1)
Quarter: 2013Q4

REPORT INFORMATION
  Report Type: Spontaneous
  Country: ES (occurrence: ES)
  Receive Date: 20131022
  Receipt Date: 20131022
  Transmission Date: 20140711
  Serious: Yes (Other)
  Sender: FDA-Public Use
  Company Number: ES-SA-2013SA103928

PATIENT
  Sex: Male

DRUGS (6)
  1. DAONIL [Suspect]
     Indication: PRODUCT USED FOR UNKNOWN INDICATION
     Dosage: DAONIL 5 MG COMPRIMIDOS: 1/2- 1/2- 1/2
     Route: 048
     Dates: start: 20130103
  2. PARACETAMOL [Suspect]
     Indication: MULTIPLE INJURIES
     Route: 048
     Dates: start: 20130924, end: 20131002
  3. DIAZEPAM [Suspect]
     Indication: PRODUCT USED FOR UNKNOWN INDICATION
     Route: 048
     Dates: start: 20130924
  4. YURELAX [Suspect]
     Indication: PRODUCT USED FOR UNKNOWN INDICATION
     Route: 048
     Dates: start: 20130805
  5. METFORMINA [Suspect]
     Indication: PRODUCT USED FOR UNKNOWN INDICATION
     Dosage: METFORMINA 850 MG COMPRIMIDOS: 1/2-1/2-1/2
     Route: 048
     Dates: start: 20091229
  6. SIMVASTATIN [Suspect]
     Indication: PRODUCT USED FOR UNKNOWN INDICATION
     Dosage: SIMVASTATINA 20 MG COMPRIMIDOS 0-0-1
     Route: 048
     Dates: start: 20120327

REACTIONS (1)
  - Insomnia [Unknown]
